FAERS Safety Report 5193151-8 (Version None)
Quarter: 2006Q4

REPORT INFORMATION
  Report Type: 
  Country: None (occurrence: None)
  Receive Date: 20061228
  Receipt Date: 20060602
  Transmission Date: 20070319
  Serious: No
  Sender: FDA-Public Use
  Company Number: US-GLAXOSMITHKLINE-A0607749A

PATIENT
  Age: 89 Year
  Sex: Male

DRUGS (8)
  1. AVODART [Suspect]
     Indication: BENIGN PROSTATIC HYPERPLASIA
     Dosage: .5MG PER DAY
     Route: 048
     Dates: start: 20050303
  2. THYROID TAB [Concomitant]
  3. BENAZEPRIL HYDROCHLORIDE [Concomitant]
  4. ICAPS [Concomitant]
  5. FOLIC ACID [Concomitant]
  6. VIT C [Concomitant]
  7. TUMS [Concomitant]
  8. VITAMINS [Concomitant]

REACTIONS (2)
  - MICTURITION URGENCY [None]
  - POLLAKIURIA [None]
